FAERS Safety Report 13105886 (Version 2)
Quarter: 2017Q1

REPORT INFORMATION
  Report Type: Spontaneous
  Country: US (occurrence: US)
  Receive Date: 20170111
  Receipt Date: 20170323
  Transmission Date: 20170428
  Serious: Yes (Other)
  Sender: FDA-Public Use
  Company Number: US-BAYER-2017-005575

PATIENT
  Age: 22 Year
  Sex: Female
  Weight: 92.52 kg

DRUGS (2)
  1. MIRENA [Suspect]
     Active Substance: LEVONORGESTREL
     Indication: CONTRACEPTION
     Dosage: 20 MCG/24HR, CONT
     Route: 015
     Dates: start: 201505, end: 20170109
  2. FLAGYL [Concomitant]
     Active Substance: METRONIDAZOLE\METRONIDAZOLE HYDROCHLORIDE
     Dosage: 1 DF, TID
     Route: 048

REACTIONS (3)
  - Pelvic pain [None]
  - Device dislocation [None]
  - Vaginal haemorrhage [None]

NARRATIVE: CASE EVENT DATE: 2016
